FAERS Safety Report 5752179-7 (Version None)
Quarter: 2008Q2

REPORT INFORMATION
  Report Type: 
  Country: None (occurrence: None)
  Receive Date: 20080529
  Receipt Date: 20080520
  Transmission Date: 20081010
  Serious: Yes (Hospitalization)
  Sender: FDA-Public Use
  Company Number: US-JNJFOC-20080504401

PATIENT
  Sex: Female
  Weight: 68.04 kg

DRUGS (3)
  1. DURAGESIC-100 [Suspect]
     Indication: PROCEDURAL PAIN
     Route: 062
  2. DURAGESIC-100 [Suspect]
     Indication: RADICULAR PAIN
     Dosage: 3 X 100
     Route: 062
  3. DURAGESIC-100 [Suspect]
     Indication: ENDOMETRIOSIS
     Route: 062

REACTIONS (6)
  - ENDOMETRIOSIS [None]
  - GRANULOMA [None]
  - INCORRECT DRUG ADMINISTRATION DURATION [None]
  - OFF LABEL USE [None]
  - RADICULAR PAIN [None]
  - WRONG TECHNIQUE IN DRUG USAGE PROCESS [None]
